FAERS Safety Report 7637235-0 (Version None)
Quarter: 2011Q3

REPORT INFORMATION
  Report Type: 
  Country: None (occurrence: None)
  Receive Date: 20110726
  Receipt Date: 20100108
  Transmission Date: 20111222
  Serious: Yes (Death, Hospitalization, Other)
  Sender: FDA-Public Use
  Company Number: US-BAYER-201010319NA

PATIENT
  Age: 63 Year
  Sex: Female
  Weight: 42.63 kg

DRUGS (15)
  1. TRASYLOL [Suspect]
     Indication: MITRAL VALVE REPLACEMENT
     Dosage: 200 ML, PUMP PRIME
     Route: 042
     Dates: start: 19980929
  2. HEPARIN [Concomitant]
  3. PLASMA [Concomitant]
     Dosage: 2 U, UNK
     Route: 042
     Dates: start: 19980929
  4. FLAGYL [Concomitant]
  5. AMPICILLIN SODIUM [Concomitant]
  6. FENTANYL [Concomitant]
     Dosage: UNK
     Dates: start: 19980929
  7. VERSED [Concomitant]
     Dosage: UNK
     Dates: start: 19980929
  8. XANAX [Concomitant]
  9. ZOFRAN [Concomitant]
  10. DARVOCET [Concomitant]
  11. GENTAMICIN [Concomitant]
  12. MEGACE [Concomitant]
  13. RED BLOOD CELLS [Concomitant]
     Dosage: 4 U, UNK
     Route: 042
     Dates: start: 19980929
  14. PLATELETS [Concomitant]
     Dosage: 6 U, UNK
     Route: 042
     Dates: start: 19980929
  15. PAVULON [Concomitant]
     Dosage: UNK
     Dates: start: 19980929

REACTIONS (12)
  - RENAL INJURY [None]
  - STRESS [None]
  - UNEVALUABLE EVENT [None]
  - FEAR [None]
  - PAIN [None]
  - EMOTIONAL DISTRESS [None]
  - DEATH [None]
  - RENAL FAILURE [None]
  - ANXIETY [None]
  - ANHEDONIA [None]
  - RENAL IMPAIRMENT [None]
  - INJURY [None]
